FAERS Safety Report 11878451 (Version 1)
Quarter: 2015Q4

REPORT INFORMATION
  Report Type: Spontaneous
  Country: CA (occurrence: CA)
  Receive Date: 20151230
  Receipt Date: 20151230
  Transmission Date: 20160305
  Serious: Yes (Disabling, Other)
  Sender: FDA-Public Use
  Company Number: CA-TEVA-621839ACC

PATIENT
  Age: 43 Year
  Sex: Female

DRUGS (10)
  1. HYDROXYCHLOROQUINE [Concomitant]
     Active Substance: HYDROXYCHLOROQUINE
  2. METFORMIN [Concomitant]
     Active Substance: METFORMIN HYDROCHLORIDE
  3. FLOVENT [Concomitant]
     Active Substance: FLUTICASONE PROPIONATE
  4. IRBESARTAN. [Concomitant]
     Active Substance: IRBESARTAN
  5. PREDNISONE. [Concomitant]
     Active Substance: PREDNISONE
  6. GLYBURIDE. [Concomitant]
     Active Substance: GLYBURIDE
  7. NAPROXEN. [Concomitant]
     Active Substance: NAPROXEN
  8. SYNTHROID [Concomitant]
     Active Substance: LEVOTHYROXINE SODIUM
  9. METHOTREXATE INJECTION, USP [Suspect]
     Active Substance: METHOTREXATE
     Indication: RHEUMATOID ARTHRITIS
     Route: 058
  10. LEUCOVORIN. [Concomitant]
     Active Substance: LEUCOVORIN

REACTIONS (4)
  - Injection site bruising [Recovered/Resolved]
  - Injection site pain [Recovered/Resolved]
  - Myalgia [Recovered/Resolved]
  - Injection site inflammation [Recovered/Resolved]
